FAERS Safety Report 6300343-0 (Version None)
Quarter: 2009Q3

REPORT INFORMATION
  Report Type: 
  Country: None (occurrence: None)
  Receive Date: 20090805
  Receipt Date: 20090724
  Transmission Date: 20100115
  Serious: Yes (Hospitalization)
  Sender: FDA-Public Use
  Company Number: 238237K09USA

PATIENT
  Age: 53 Year
  Sex: Female

DRUGS (3)
  1. REBIF [Suspect]
     Indication: MULTIPLE SCLEROSIS
     Dates: start: 20090501, end: 20090603
  2. AVONEX [Suspect]
     Indication: MULTIPLE SCLEROSIS
     Dosage: 30 MCG, 1 IN 1 WEEKS, INTRAMUSCULAR, 30 MCG, 1 IN 1 WEEKS, INTRAMUSCULAR
     Route: 030
     Dates: end: 20090603
  3. AVONEX [Suspect]
     Indication: MULTIPLE SCLEROSIS
     Dosage: 30 MCG, 1 IN 1 WEEKS, INTRAMUSCULAR, 30 MCG, 1 IN 1 WEEKS, INTRAMUSCULAR
     Route: 030
     Dates: start: 20000101

REACTIONS (9)
  - COLITIS [None]
  - DEHYDRATION [None]
  - LETHARGY [None]
  - MENINGITIS [None]
  - OVERDOSE [None]
  - PNEUMONIA [None]
  - PULMONARY THROMBOSIS [None]
  - THROMBOSIS [None]
  - URINARY TRACT INFECTION [None]
